FAERS Safety Report 4320604-4 (Version None)
Quarter: 2004Q1

REPORT INFORMATION
  Report Type: 
  Country: None (occurrence: None)
  Receive Date: 20040319
  Receipt Date: 20040319
  Transmission Date: 20041129
  Serious: Yes (Other)
  Sender: FDA-Public Use
  Company Number: None

PATIENT
  Age: 19 Year
  Sex: Female
  Weight: 65.7716 kg

DRUGS (3)
  1. UNASYN-PFIZER 3QM/100NSS (ADD-A-VIAL) [Suspect]
     Indication: URINARY TRACT INFECTION
     Dosage: BID PORT A CATH RT SUBCLAVIAN VEIN
     Dates: start: 20040228, end: 20040305
  2. MS CONTIN [Concomitant]
  3. DEPO-PROVERA [Concomitant]

REACTIONS (17)
  - ABDOMINAL DISTENSION [None]
  - ABNORMAL BEHAVIOUR [None]
  - AMNESIA [None]
  - BEDRIDDEN [None]
  - DISTURBANCE IN ATTENTION [None]
  - EDUCATIONAL PROBLEM [None]
  - EOSINOPHILIA [None]
  - FEELING ABNORMAL [None]
  - HYPERSOMNIA [None]
  - INCOHERENT [None]
  - INJECTION SITE RASH [None]
  - MEMORY IMPAIRMENT [None]
  - MOBILITY DECREASED [None]
  - RASH PRURITIC [None]
  - SENSATION OF HEAVINESS [None]
  - THINKING ABNORMAL [None]
  - VOMITING PROJECTILE [None]
